FAERS Safety Report 5919719-6 (Version None)
Quarter: 2008Q4

REPORT INFORMATION
  Report Type: 
  Country: None (occurrence: None)
  Receive Date: 20081015
  Receipt Date: 20081008
  Transmission Date: 20090506
  Serious: No
  Sender: FDA-Public Use
  Company Number: US-B.I. PHARMACEUTICALS,INC./RIDGEFIELD-2008-BP-14820BP

PATIENT
  Sex: Male

DRUGS (8)
  1. FLOMAX [Suspect]
     Indication: BENIGN PROSTATIC HYPERPLASIA
     Dosage: .4MG
     Route: 048
     Dates: start: 20080921, end: 20080921
  2. FLOMAX [Suspect]
     Indication: PROSTATOMEGALY
  3. CIPRO [Suspect]
     Dosage: 1000MG
  4. PLAVIX [Concomitant]
     Indication: CARDIAC DISORDER
     Dosage: 75MG
  5. ASPIRIN [Concomitant]
     Indication: CARDIAC DISORDER
  6. COZAAR [Concomitant]
     Indication: BLOOD PRESSURE INCREASED
  7. METOPROLOL TARTRATE [Concomitant]
     Indication: BLOOD PRESSURE INCREASED
  8. SIMVASTATIN [Concomitant]
     Indication: BLOOD CHOLESTEROL INCREASED

REACTIONS (4)
  - DIZZINESS [None]
  - HEADACHE [None]
  - INSOMNIA [None]
  - NECK PAIN [None]
